FAERS Safety Report 8320278-1 (Version None)
Quarter: 2012Q2

REPORT INFORMATION
  Report Type: 
  Country: None (occurrence: None)
  Receive Date: 20120426
  Receipt Date: 20120426
  Transmission Date: 20120825
  Serious: Yes (Other)
  Sender: FDA-Public Use
  Company Number: None

PATIENT
  Age: 78 Year
  Sex: Female
  Weight: 68.0396 kg

DRUGS (1)
  1. CEPHALEXIN [Suspect]
     Indication: LOCALISED INFECTION
     Dosage: 500MG 4 PER DAY CAPSULE
     Dates: start: 20120406, end: 20120411

REACTIONS (7)
  - HEADACHE [None]
  - SKIN LESION [None]
  - FEELING HOT [None]
  - DIARRHOEA [None]
  - MYALGIA [None]
  - CHILLS [None]
  - SKIN DISCOLOURATION [None]
